FAERS Safety Report 9382881 (Version 1)
Quarter: 2013Q3

REPORT INFORMATION
  Report Type: Spontaneous
  Country: JP (occurrence: JP)
  Receive Date: 20130703
  Receipt Date: 20130703
  Transmission Date: 20140515
  Serious: Yes (Hospitalization)
  Sender: FDA-Public Use
  Company Number: JP-BAXTER-2013BAX017107

PATIENT
  Sex: Male

DRUGS (1)
  1. ADVATE 2000 [Suspect]
     Indication: HAEMOSTASIS
     Route: 042

REACTIONS (1)
  - Haemophilic arthropathy [Recovered/Resolved]
